FAERS Safety Report 21963564 (Version 1)
Quarter: 2023Q1

REPORT INFORMATION
  Report Type: Spontaneous
  Country: AU (occurrence: AU)
  Receive Date: 20230207
  Receipt Date: 20230207
  Transmission Date: 20230418
  Serious: Yes (Other)
  Sender: FDA-Public Use
  Company Number: AU-WOODWARD-2023-AU-000035

PATIENT
  Age: 60 Year
  Sex: Male

DRUGS (1)
  1. DUTASTERIDE\TAMSULOSIN HYDROCHLORIDE [Suspect]
     Active Substance: DUTASTERIDE\TAMSULOSIN HYDROCHLORIDE
     Indication: Product used for unknown indication
     Dosage: UNK, QD, EVERY NIGHT
     Route: 065

REACTIONS (15)
  - Mental disorder [Unknown]
  - Cardiac disorder [Unknown]
  - Vomiting [Unknown]
  - Headache [Unknown]
  - Alopecia [Unknown]
  - Breast pain [Unknown]
  - Product availability issue [Unknown]
  - Diabetes mellitus [Unknown]
  - Near death experience [Unknown]
  - General physical health deterioration [Unknown]
  - Skin disorder [Unknown]
  - Movement disorder [Unknown]
  - Anxiety [Unknown]
  - Chest pain [Unknown]
  - Memory impairment [Unknown]
